FAERS Safety Report 19308165 (Version 1)
Quarter: 2021Q2

REPORT INFORMATION
  Report Type: Spontaneous
  Country: US (occurrence: US)
  Receive Date: 20210526
  Receipt Date: 20210526
  Transmission Date: 20210717
  Serious: No
  Sender: FDA-Public Use
  Company Number: None

PATIENT
  Age: 39 Year
  Sex: Male

DRUGS (5)
  1. HYDROMORPHONE 8MG [Concomitant]
     Dates: start: 20200731
  2. OMEPRAZOLE 20MG [Concomitant]
     Active Substance: OMEPRAZOLE
     Dates: start: 20210427
  3. DEFERASIROX. [Suspect]
     Active Substance: DEFERASIROX
     Indication: SICKLE CELL ANAEMIA
     Route: 048
     Dates: start: 20201016
  4. BANOPHEN 25MG [Concomitant]
     Dates: start: 20210428
  5. FOLIC ACID 1MG [Concomitant]
     Active Substance: FOLIC ACID
     Dates: start: 20200225

REACTIONS (1)
  - Laryngeal pain [None]

NARRATIVE: CASE EVENT DATE: 20210526
